FAERS Safety Report 25529416 (Version 1)
Quarter: 2025Q3

REPORT INFORMATION
  Report Type: Spontaneous
  Country: US (occurrence: None)
  Receive Date: 20250707
  Receipt Date: 20250707
  Transmission Date: 20251020
  Serious: Yes (Disabling)
  Sender: FDA-CTU
  Company Number: None

PATIENT
  Age: 20 Year
  Sex: Male
  Weight: 69.75 kg

DRUGS (1)
  1. CIPROFLOXACIN [Suspect]
     Active Substance: CIPROFLOXACIN
     Indication: Paronychia
     Dates: start: 20170101, end: 20170401

REACTIONS (6)
  - Insomnia [None]
  - Tendon injury [None]
  - Pain [None]
  - Arthropathy [None]
  - Vision blurred [None]
  - Amnesia [None]

NARRATIVE: CASE EVENT DATE: 20170101
